FAERS Safety Report 8310664-8 (Version None)
Quarter: 2012Q2

REPORT INFORMATION
  Report Type: 
  Country: None (occurrence: None)
  Receive Date: 20120425
  Receipt Date: 20120416
  Transmission Date: 20120825
  Serious: Yes (Other)
  Sender: FDA-Public Use
  Company Number: BR-JNJFOC-20120408262

PATIENT
  Age: 79 Year
  Sex: Male

DRUGS (1)
  1. HALDOL [Suspect]
     Indication: DEMENTIA ALZHEIMER'S TYPE
     Route: 065
     Dates: start: 20110101

REACTIONS (1)
  - PARKINSON'S DISEASE [None]
